FAERS Safety Report 6929575-5 (Version None)
Quarter: 2010Q3

REPORT INFORMATION
  Report Type: 
  Country: None (occurrence: None)
  Receive Date: 20100818
  Receipt Date: 20100804
  Transmission Date: 20110219
  Serious: Yes (Other)
  Sender: FDA-Public Use
  Company Number: US-ABBOTT-10P-163-0648330-00

PATIENT
  Age: 13 Month
  Sex: Male
  Weight: 8.56 kg

DRUGS (9)
  1. RITONAVIR ORAL SOLUTION [Suspect]
     Indication: HIV INFECTION
     Route: 048
     Dates: start: 20090817, end: 20100518
  2. RITONAVIR ORAL SOLUTION [Suspect]
     Dates: start: 20100622
  3. ATAZANAVIR [Concomitant]
     Indication: HIV INFECTION
     Route: 048
     Dates: start: 20090817, end: 20100518
  4. ATAZANAVIR [Concomitant]
     Dates: start: 20100622
  5. EPIVIR [Concomitant]
     Indication: HIV INFECTION
  6. EPIVIR [Concomitant]
     Dates: start: 20100622
  7. ZIDOVUDINE [Concomitant]
     Indication: HIV INFECTION
  8. ZIDOVUDINE [Concomitant]
     Dates: start: 20100622
  9. ERGOCALCIFEROL [Concomitant]
     Indication: PRODUCT USED FOR UNKNOWN INDICATION

REACTIONS (1)
  - BLOOD ALKALINE PHOSPHATASE INCREASED [None]
